FAERS Safety Report 24276731 (Version 1)
Quarter: 2024Q3

REPORT INFORMATION
  Report Type: Spontaneous
  Country: US (occurrence: US)
  Receive Date: 20240903
  Receipt Date: 20240903
  Transmission Date: 20241016
  Serious: Yes (Other)
  Sender: MYLAN
  Company Number: US-MYLANLABS-2024M1079629

PATIENT
  Age: 18 Year
  Sex: Female

DRUGS (6)
  1. HEPARIN [Suspect]
     Active Substance: HEPARIN SODIUM
     Indication: Coronary artery aneurysm
     Dosage: UNK
     Route: 042
  2. ASPIRIN [Concomitant]
     Active Substance: ASPIRIN
     Indication: Coronary artery aneurysm
     Dosage: UNK
     Route: 065
  3. Immunoglobulin [Concomitant]
     Indication: Coronary artery aneurysm
     Dosage: UNK
     Route: 042
  4. METHYLPREDNISOLONE [Concomitant]
     Active Substance: METHYLPREDNISOLONE
     Indication: Coronary artery aneurysm
     Dosage: UNK
     Route: 065
  5. INFLIXIMAB [Concomitant]
     Active Substance: INFLIXIMAB
     Indication: Coronary artery aneurysm
     Dosage: UNK
     Route: 065
  6. CYCLOSPORINE [Concomitant]
     Active Substance: CYCLOSPORINE
     Indication: Coronary artery aneurysm
     Dosage: UNK
     Route: 065

REACTIONS (1)
  - Drug ineffective [Unknown]
